FAERS Safety Report 21695089 (Version 2)
Quarter: 2022Q4

REPORT INFORMATION
  Report Type: Spontaneous
  Country: US (occurrence: US)
  Receive Date: 20221207
  Receipt Date: 20221220
  Transmission Date: 20230113
  Serious: No
  Sender: FDA-Public Use
  Company Number: US-INSUD PHARMA-2209US04633

PATIENT

DRUGS (1)
  1. SLYND [Suspect]
     Active Substance: DROSPIRENONE
     Indication: Contraception
     Dosage: UNK
     Route: 048
     Dates: start: 202208

REACTIONS (6)
  - Amenorrhoea [Not Recovered/Not Resolved]
  - Dysmenorrhoea [Recovered/Resolved]
  - Intermenstrual bleeding [Not Recovered/Not Resolved]
  - Vaginal discharge [Recovered/Resolved]
  - Emotional disorder [Unknown]
  - Menstruation irregular [Unknown]

NARRATIVE: CASE EVENT DATE: 20220101
